FAERS Safety Report 8291465-6 (Version None)
Quarter: 2012Q2

REPORT INFORMATION
  Report Type: 
  Country: None (occurrence: None)
  Receive Date: 20120417
  Receipt Date: 20120413
  Transmission Date: 20120825
  Serious: Yes (Other)
  Sender: FDA-Public Use
  Company Number: DK-PFIZER INC-2012038903

PATIENT
  Age: 62 Year
  Sex: Female
  Weight: 85.002 kg

DRUGS (3)
  1. VARENICLINE TARTRATE [Suspect]
     Dosage: 0.5 MG, 2X/DAY
     Route: 048
     Dates: start: 20110815, end: 20110818
  2. VARENICLINE TARTRATE [Suspect]
     Dosage: 2 MG, 1X/DAY
     Route: 048
     Dates: start: 20110819, end: 20111025
  3. VARENICLINE TARTRATE [Suspect]
     Indication: SMOKING CESSATION THERAPY
     Dosage: 0.5 MG, 1X/DAY
     Route: 048
     Dates: start: 20110812, end: 20110814

REACTIONS (19)
  - HAEMATOCHEZIA [None]
  - VISUAL IMPAIRMENT [None]
  - DRY MOUTH [None]
  - PAIN IN EXTREMITY [None]
  - ABNORMAL DREAMS [None]
  - GINGIVAL PAIN [None]
  - HEADACHE [None]
  - NAUSEA [None]
  - COLITIS ULCERATIVE [None]
  - BACK PAIN [None]
  - MUSCLE TIGHTNESS [None]
  - DIZZINESS [None]
  - TINNITUS [None]
  - WEIGHT INCREASED [None]
  - RESTLESSNESS [None]
  - SLEEP DISORDER [None]
  - ARTHRALGIA [None]
  - GINGIVAL BLEEDING [None]
  - ABDOMINAL DISCOMFORT [None]
